FAERS Safety Report 15742445 (Version 2)
Quarter: 2019Q1

REPORT INFORMATION
  Report Type: Spontaneous
  Country: US (occurrence: US)
  Receive Date: 20181219
  Receipt Date: 20190114
  Transmission Date: 20190417
  Serious: No
  Sender: FDA-Public Use
  Company Number: US-BIOMARINAP-US-2018-119396

PATIENT
  Sex: Male

DRUGS (1)
  1. VIMIZIM [Suspect]
     Active Substance: ELOSULFASE ALFA
     Indication: MUCOPOLYSACCHARIDOSIS IV
     Dosage: 90 MILLIGRAM, QW
     Route: 042
     Dates: start: 20180118

REACTIONS (1)
  - Gastroenteritis viral [Unknown]
